FAERS Safety Report 5300467-0 (Version None)
Quarter: 2007Q2

REPORT INFORMATION
  Report Type: 
  Country: None (occurrence: None)
  Receive Date: 20070411
  Receipt Date: 20070326
  Transmission Date: 20071010
  Serious: Yes (Hospitalization)
  Sender: FDA-Public Use
  Company Number: 2007000328

PATIENT
  Age: 57 Year
  Sex: Female
  Weight: 72.5755 kg

DRUGS (5)
  1. ERLOTINIB (TABLET) [Suspect]
     Indication: OVARIAN CANCER
     Dosage: 150 MG (QD), ORAL
     Route: 048
     Dates: start: 20061127, end: 20070208
  2. TOPOTECAN (TOPOTECAN) [Suspect]
     Indication: OVARIAN CANCER
     Dosage: 2.16 MG (DAYS 1-5.), INTRAVENOUS
     Route: 042
     Dates: start: 20061127, end: 20070208
  3. ARANESP [Concomitant]
  4. ATIVAN [Concomitant]
  5. ANZEMET [Concomitant]

REACTIONS (4)
  - DEHYDRATION [None]
  - HYPERTENSION [None]
  - NAUSEA [None]
  - VOMITING [None]
